FAERS Safety Report 10995430 (Version 2)
Quarter: 2015Q2

REPORT INFORMATION
  Report Type: Report from Study
  Country: CA (occurrence: CA)
  Receive Date: 20150407
  Receipt Date: 20150415
  Transmission Date: 20150821
  Serious: Yes (Death)
  Sender: FDA-Public Use
  Company Number: CA-PFIZER INC-2015117302

PATIENT
  Age: 57 Year
  Sex: Male
  Weight: 135 kg

DRUGS (5)
  1. METOPROLOL TARTRATE. [Concomitant]
     Active Substance: METOPROLOL TARTRATE
     Indication: HYPERTENSION
     Dosage: 12.5 MG, 2X/DAY
     Route: 048
     Dates: start: 20150217
  2. TOFACITINIB CITRATE [Suspect]
     Active Substance: TOFACITINIB CITRATE
     Indication: PSORIASIS
     Dosage: UNK
     Route: 048
     Dates: start: 20130315
  3. SALBUTAMOL [Concomitant]
     Active Substance: ALBUTEROL
     Indication: ASTHMA
     Dosage: UNK, AS NEEDED
     Route: 048
     Dates: start: 20150311
  4. ASA [Concomitant]
     Active Substance: ASPIRIN
     Indication: HYPERTENSION
     Dosage: 81 MG, 1X/DAY
     Route: 048
     Dates: start: 20150217
  5. ADVAIR HFA [Concomitant]
     Active Substance: FLUTICASONE PROPIONATE\SALMETEROL XINAFOATE
     Indication: ASTHMA
     Dosage: 250/25 MCG, 2X/DAY
     Route: 048
     Dates: start: 20150311

REACTIONS (1)
  - Road traffic accident [Fatal]

NARRATIVE: CASE EVENT DATE: 20150329
